FAERS Safety Report 7483156-6 (Version None)
Quarter: 2011Q2

REPORT INFORMATION
  Report Type: 
  Country: None (occurrence: None)
  Receive Date: 20110516
  Receipt Date: 20101101
  Transmission Date: 20111010
  Serious: No
  Sender: FDA-Public Use
  Company Number: US-AMGEN-USASP2010001828

PATIENT
  Age: 60 Year
  Sex: Female

DRUGS (9)
  1. CO-ENZIME Q-10 [Concomitant]
  2. LISINOPRIL [Concomitant]
     Dosage: UNK
  3. MULTI-VITAMINS [Concomitant]
     Dosage: UNK
  4. ASPIRIN [Concomitant]
  5. GLUCOSAMINE [Concomitant]
     Dosage: UNK
  6. ENBREL [Suspect]
     Indication: PSORIATIC ARTHROPATHY
     Dosage: 50 MG, QWK
     Dates: start: 20101001
  7. CALCIUM +D [Concomitant]
  8. DICLOFENAC SODIUM [Concomitant]
     Dosage: UNK
  9. CHONDROITIN [Concomitant]
     Dosage: UNK

REACTIONS (3)
  - RASH ERYTHEMATOUS [None]
  - SKIN BURNING SENSATION [None]
  - RASH PRURITIC [None]
